FAERS Safety Report 5307876-4 (Version None)
Quarter: 2007Q2

REPORT INFORMATION
  Report Type: 
  Country: None (occurrence: None)
  Receive Date: 20070425
  Receipt Date: 20070413
  Transmission Date: 20071010
  Serious: Yes (Other)
  Sender: FDA-Public Use
  Company Number: BR-SANOFI-SYNTHELABO-A01200703909

PATIENT
  Sex: Female
  Weight: 40 kg

DRUGS (2)
  1. FLUOXETINE [Concomitant]
     Indication: DEPRESSIVE SYMPTOM
     Dosage: UNK
     Route: 065
  2. LADOGAL [Suspect]
     Indication: ENDOMETRIOSIS
     Route: 048
     Dates: start: 20050101, end: 20060101

REACTIONS (12)
  - ALOPECIA [None]
  - DEPRESSED MOOD [None]
  - DYSPNOEA [None]
  - FATIGUE [None]
  - HIRSUTISM [None]
  - LIVER DISORDER [None]
  - MADAROSIS [None]
  - PALPITATIONS [None]
  - RASH MACULAR [None]
  - RENAL IMPAIRMENT [None]
  - SKIN HYPERTROPHY [None]
  - TREMOR [None]
